FAERS Safety Report 17724977 (Version 3)
Quarter: 2020Q2

REPORT INFORMATION
  Report Type: Spontaneous
  Country: CN (occurrence: CN)
  Receive Date: 20200429
  Receipt Date: 20200528
  Transmission Date: 20200714
  Serious: Yes (Other)
  Sender: FDA-Public Use
  Company Number: CN-BAYER-2020-071133

PATIENT

DRUGS (1)
  1. NEXAVAR [Suspect]
     Active Substance: SORAFENIB
     Dosage: 600 MG, QD
     Route: 048
     Dates: end: 202004

REACTIONS (4)
  - Off label use [None]
  - Tooth deposit [None]
  - Disease progression [None]
  - Gingival bleeding [None]

NARRATIVE: CASE EVENT DATE: 202004
